FAERS Safety Report 6659066-0 (Version None)
Quarter: 2010Q1

REPORT INFORMATION
  Report Type: 
  Country: None (occurrence: None)
  Receive Date: 20100330
  Receipt Date: 20100318
  Transmission Date: 20100710
  Serious: Yes (Other)
  Sender: FDA-Public Use
  Company Number: CA-PFIZER INC-2010035101

PATIENT
  Sex: Male

DRUGS (2)
  1. CHAMPIX [Suspect]
  2. WARFARIN [Interacting]

REACTIONS (2)
  - DRUG INTERACTION [None]
  - PHLEBITIS [None]
